FAERS Safety Report 6404170-5 (Version None)
Quarter: 2009Q4

REPORT INFORMATION
  Report Type: 
  Country: None (occurrence: None)
  Receive Date: 20091013
  Receipt Date: 20090930
  Transmission Date: 20100525
  Serious: Yes (Hospitalization)
  Sender: FDA-Public Use
  Company Number: 2009100010

PATIENT
  Age: 75 Year
  Sex: Male

DRUGS (6)
  1. TORSEMIDE [Suspect]
     Dosage: 5 MG (5 MG, 1 IN 1 D), ORAL
     Route: 048
     Dates: end: 20090629
  2. JANUVIA [Suspect]
     Dosage: 100 MG (100 MG, 1 IN 1 D), ORAL
     Route: 048
     Dates: end: 20090629
  3. DIOVAN [Suspect]
     Dosage: 80 MG (80 MG, 1 IN 1 D), ORAL
     Route: 048
     Dates: end: 20090629
  4. CRESTOR [Suspect]
     Dosage: 10 MG (10 MG, 1 IN 1 D), ORAL
     Route: 048
     Dates: end: 20090629
  5. NEXIUM [Suspect]
     Indication: GASTRITIS
     Dosage: 40 MG (40 MG, 1 IN 1 D), ORAL
     Route: 048
     Dates: start: 20090609, end: 20090629
  6. GLUCOPHAGE [Concomitant]

REACTIONS (2)
  - DRUG INEFFECTIVE [None]
  - PANCREATITIS [None]
